FAERS Safety Report 6286766-7 (Version None)
Quarter: 2009Q3

REPORT INFORMATION
  Report Type: 
  Country: None (occurrence: None)
  Receive Date: 20090727
  Receipt Date: 20090727
  Transmission Date: 20100115
  Serious: Yes (Hospitalization)
  Sender: FDA-Public Use
  Company Number: None

PATIENT

DRUGS (1)
  1. VANCOMYCIN HCL [Suspect]
     Dosage: 1 GRAM IV
     Route: 042

REACTIONS (1)
  - DEVICE MALFUNCTION [None]
